FAERS Safety Report 12697593 (Version 1)
Quarter: 2016Q3

REPORT INFORMATION
  Report Type: Spontaneous
  Country: US (occurrence: None)
  Receive Date: 20160829
  Receipt Date: 20160829
  Transmission Date: 20161109
  Serious: Yes (Disabling)
  Sender: FDA-Public Use
  Company Number: None

PATIENT
  Age: 38 Year
  Sex: Female
  Weight: 68.04 kg

DRUGS (5)
  1. LEVOTHYROXINE. [Concomitant]
     Active Substance: LEVOTHYROXINE
  2. XTRA STRENGTH TYLENOL [Concomitant]
  3. MULTI-VITAMINS (CALCIUM PANTOTHENATE, FOLIC ACID, VITAMINS NOS) [Concomitant]
     Active Substance: VITAMINS
  4. LIOTHYRONINE [Concomitant]
     Active Substance: LIOTHYRONINE
  5. LUPRON DEPOT [Suspect]
     Active Substance: LEUPROLIDE ACETATE
     Indication: ENDOMETRIOSIS
     Dosage: 1 INJECTION (S) MONTHLY-ISH INTO THE MUSCLE
     Route: 030

REACTIONS (5)
  - Feeling abnormal [None]
  - Uterine prolapse [None]
  - Fatigue [None]
  - Pain [None]
  - Hot flush [None]

NARRATIVE: CASE EVENT DATE: 20160814
